FAERS Safety Report 9800290 (Version 1)
Quarter: 2014Q1

REPORT INFORMATION
  Report Type: Spontaneous
  Country: IN (occurrence: IN)
  Receive Date: 20140106
  Receipt Date: 20140106
  Transmission Date: 20141002
  Serious: Yes (Other)
  Sender: FDA-Public Use
  Company Number: PHHY2013IN154271

PATIENT
  Age: 38 Year
  Sex: Female

DRUGS (2)
  1. RANITIDINE [Suspect]
     Dosage: 50 MG, UNK
     Route: 030
  2. ONDANSETRON [Suspect]
     Dosage: 4 MG, UNK
     Route: 042

REACTIONS (5)
  - Cardiac arrest [Recovered/Resolved]
  - Apnoea [Recovered/Resolved]
  - Unresponsive to stimuli [Recovered/Resolved]
  - Maternal exposure during pregnancy [Unknown]
  - Pulse absent [Recovered/Resolved]
